FAERS Safety Report 19915951 (Version 1)
Quarter: 2021Q4

REPORT INFORMATION
  Report Type: Spontaneous
  Country: US (occurrence: US)
  Receive Date: 20211004
  Receipt Date: 20211004
  Transmission Date: 20220303
  Serious: Yes (Other)
  Sender: FDA-Public Use
  Company Number: None

PATIENT
  Age: 62 Year
  Sex: Female
  Weight: 52.9 kg

DRUGS (1)
  1. PACLITAXEL [Suspect]
     Active Substance: PACLITAXEL
     Indication: Uterine cancer
     Dosage: ?          OTHER FREQUENCY:EVERY 3 WEEKS;
     Route: 042
     Dates: start: 20211004, end: 20211004

REACTIONS (3)
  - Chest discomfort [None]
  - Back pain [None]
  - Flushing [None]

NARRATIVE: CASE EVENT DATE: 20211004
